FAERS Safety Report 8576529-1 (Version None)
Quarter: 2012Q3

REPORT INFORMATION
  Report Type: 
  Country: None (occurrence: None)
  Receive Date: 20120807
  Receipt Date: 20120727
  Transmission Date: 20120928
  Serious: Yes (Death, Hospitalization, Other)
  Sender: FDA-Public Use
  Company Number: BE-ROCHE-1093729

PATIENT
  Age: 79 Year
  Sex: Male

DRUGS (3)
  1. FLUOROURACIL [Suspect]
     Indication: COLORECTAL CANCER METASTATIC
     Route: 042
     Dates: start: 20110712, end: 20111129
  2. AVASTIN [Suspect]
     Indication: COLORECTAL CANCER METASTATIC
     Route: 042
     Dates: start: 20110711, end: 20111129
  3. OXALIPLATIN [Suspect]
     Indication: COLORECTAL CANCER METASTATIC
     Route: 042
     Dates: start: 20110711, end: 20111129

REACTIONS (6)
  - PNEUMONIA [None]
  - FEBRILE NEUTROPENIA [None]
  - LUNG INFECTION [None]
  - PERIPHERAL PARALYSIS [None]
  - SEPTIC SHOCK [None]
  - POLYNEUROPATHY [None]
